FAERS Safety Report 8425310 (Version 3)
Quarter: 2013Q2

REPORT INFORMATION
  Report Type: Report from Study
  Country: US (occurrence: US)
  Receive Date: 20120224
  Receipt Date: 20130613
  Transmission Date: 20140414
  Serious: Yes (Other)
  Sender: FDA-Public Use
  Company Number: US-ABBOTT-12P-163-0905416-00

PATIENT
  Age: 68 Year
  Sex: Female
  Weight: 80.81 kg

DRUGS (14)
  1. HUMIRA 40 MG/ 0.8 ML PRE-FILLED SYRINGE [Suspect]
     Indication: RHEUMATOID ARTHRITIS
     Dates: start: 2002, end: 20130510
  2. METHOTREXATE [Concomitant]
     Indication: RHEUMATOID ARTHRITIS
  3. MOBIC [Concomitant]
     Indication: RHEUMATOID ARTHRITIS
  4. FOLIC ACID [Concomitant]
     Indication: VITAMIN SUPPLEMENTATION
  5. ATENOLOL [Concomitant]
     Indication: HYPERTENSION
  6. TRIAMTERENE/HCTZ [Concomitant]
     Indication: HYPERTENSION
  7. PROTONIX [Concomitant]
     Indication: GASTRIC DISORDER
  8. PROTONIX [Concomitant]
     Indication: PROPHYLAXIS
  9. MULTIVITAMINS WITH MINERALS [Concomitant]
     Indication: VITAMIN SUPPLEMENTATION
  10. FLEXERIL [Concomitant]
     Indication: PRODUCT USED FOR UNKNOWN INDICATION
     Dates: start: 2010
  11. CALCIUM [Concomitant]
     Indication: PRODUCT USED FOR UNKNOWN INDICATION
  12. MAXIDE [Concomitant]
     Indication: PRODUCT USED FOR UNKNOWN INDICATION
  13. HIGH FLORIDE TOOTH PASTE [Concomitant]
     Indication: PRODUCT USED FOR UNKNOWN INDICATION
  14. EYE DROPS [Concomitant]
     Indication: PRODUCT USED FOR UNKNOWN INDICATION

REACTIONS (8)
  - Osteoarthritis [Recovered/Resolved]
  - Osteoarthritis [Not Recovered/Not Resolved]
  - Osteoarthritis [Not Recovered/Not Resolved]
  - Nerve compression [Recovered/Resolved]
  - Neuralgia [Recovered/Resolved]
  - Injection site pain [Not Recovered/Not Resolved]
  - Muscle spasms [Not Recovered/Not Resolved]
  - Vitamin D decreased [Not Recovered/Not Resolved]
